FAERS Safety Report 21273980 (Version 5)
Quarter: 2023Q2

REPORT INFORMATION
  Report Type: Spontaneous
  Country: US (occurrence: US)
  Receive Date: 20220831
  Receipt Date: 20230627
  Transmission Date: 20230722
  Serious: No
  Sender: FDA-Public Use
  Company Number: US-PFIZER INC-202201108985

PATIENT
  Age: 77 Year
  Sex: Male

DRUGS (4)
  1. INLYTA [Suspect]
     Active Substance: AXITINIB
     Dosage: 1 DF, 2X/DAY (1 TABLET TWO TIMES DAILY FOR 21 DAYS )
     Dates: start: 20220714
  2. INLYTA [Suspect]
     Active Substance: AXITINIB
     Dosage: 1 MG, 3X/DAY (1MG, TAKE 3 TABLETS (3MG) BY MOUTH DAILY FOR 21 DAYS)
     Route: 048
     Dates: start: 2023
  3. INLYTA [Suspect]
     Active Substance: AXITINIB
     Dosage: 3 MG, DAILY FOR 21 DAYS
     Route: 048
  4. INLYTA [Suspect]
     Active Substance: AXITINIB
     Dosage: TAKE 3 TABLETS (3 MG) BY MOUTH 2 TIMES DAILY FOR 21 DAYS)
     Route: 048

REACTIONS (3)
  - Off label use [Unknown]
  - Diarrhoea [Not Recovered/Not Resolved]
  - Thyroid function test abnormal [Unknown]

NARRATIVE: CASE EVENT DATE: 20220101
